FAERS Safety Report 9364726 (Version 1)
Quarter: 2013Q2

REPORT INFORMATION
  Report Type: Spontaneous
  Country: ZA (occurrence: ZA)
  Receive Date: 20130624
  Receipt Date: 20130624
  Transmission Date: 20140414
  Serious: Yes (Death)
  Sender: FDA-Public Use
  Company Number: ZA-BRISTOL-MYERS SQUIBB COMPANY-19017037

PATIENT
  Age: 9 Year
  Sex: Female

DRUGS (5)
  1. ORENCIA [Suspect]
     Dates: start: 20130131
  2. METHOTREXATE [Concomitant]
     Route: 048
     Dates: start: 20080214
  3. FOLATE [Concomitant]
     Route: 048
     Dates: start: 20080214
  4. NAPROXEN [Concomitant]
     Dates: start: 20080124
  5. METICORTEN [Concomitant]
     Dates: start: 20080124

REACTIONS (4)
  - Hepatic failure [Fatal]
  - Hepatitis A [Fatal]
  - Meningococcal sepsis [Fatal]
  - Histiocytosis haematophagic [Fatal]
